FAERS Safety Report 25419773 (Version 5)
Quarter: 2025Q3

REPORT INFORMATION
  Report Type: Spontaneous
  Country: US (occurrence: US)
  Receive Date: 20250610
  Receipt Date: 20250916
  Transmission Date: 20251021
  Serious: Yes (Other)
  Sender: SANOFI AVENTIS
  Company Number: US-SA-2025SA163737

PATIENT
  Age: 87 Year
  Sex: Male
  Weight: 63.18 kg

DRUGS (3)
  1. DUPIXENT [Suspect]
     Active Substance: DUPILUMAB
     Indication: Dermatitis atopic
     Dosage: 300 MG, QOW
     Route: 058
     Dates: start: 2023, end: 202508
  2. DUPIXENT [Suspect]
     Active Substance: DUPILUMAB
     Indication: Eczema
  3. UNSPECIFIED INGREDIENT [Concomitant]
     Active Substance: UNSPECIFIED INGREDIENT

REACTIONS (12)
  - Xerophthalmia [Unknown]
  - Lacrimation decreased [Unknown]
  - Dry skin [Unknown]
  - Meibomian gland dysfunction [Unknown]
  - Trichiasis [Unknown]
  - Pain in extremity [Recovered/Resolved]
  - Vision blurred [Unknown]
  - Condition aggravated [Unknown]
  - Eye irritation [Unknown]
  - Eye inflammation [Unknown]
  - Dry eye [Unknown]
  - Dermatitis atopic [Unknown]

NARRATIVE: CASE EVENT DATE: 20240101
